FAERS Safety Report 4525696-5 (Version None)
Quarter: 2004Q4

REPORT INFORMATION
  Report Type: 
  Country: None (occurrence: None)
  Receive Date: 20041116
  Receipt Date: 20041014
  Transmission Date: 20050328
  Serious: No
  Sender: FDA-Public Use
  Company Number: S04-USA-06762-01

PATIENT
  Age: 76 Year
  Sex: Female

DRUGS (6)
  1. NAMENDA [Suspect]
     Indication: GLAUCOMA
     Dosage: 10 MG QHS PO
     Route: 048
     Dates: start: 20040923
  2. NAMENDA [Suspect]
     Indication: GLAUCOMA
     Dosage: 5 MG QD PO
     Route: 048
     Dates: start: 20040909, end: 20040922
  3. ETODOLAC [Concomitant]
  4. AVAPRO [Concomitant]
  5. FOSAMAX [Concomitant]
  6. GLUCOSAMINE [Concomitant]

REACTIONS (1)
  - ARTHRALGIA [None]
